FAERS Safety Report 6613974-5 (Version None)
Quarter: 2010Q1

REPORT INFORMATION
  Report Type: 
  Country: None (occurrence: None)
  Receive Date: 20100225
  Receipt Date: 20100215
  Transmission Date: 20100710
  Serious: Yes (Other)
  Sender: FDA-Public Use
  Company Number: 004948

PATIENT

DRUGS (1)
  1. KEPPRA [Suspect]
     Indication: CLONIC CONVULSION

REACTIONS (5)
  - ANGER [None]
  - APLASTIC ANAEMIA [None]
  - FATIGUE [None]
  - FEELING COLD [None]
  - THROMBOSIS [None]
